FAERS Safety Report 5050976-7 (Version None)
Quarter: 2006Q3

REPORT INFORMATION
  Report Type: 
  Country: None (occurrence: None)
  Receive Date: 20060714
  Receipt Date: 20060615
  Transmission Date: 20061208
  Serious: Yes (Other)
  Sender: FDA-Public Use
  Company Number: PHBS2006VE09128

PATIENT
  Age: 44 Year
  Sex: Female

DRUGS (2)
  1. ZOMETA [Suspect]
     Indication: METASTASES TO BONE
     Dosage: 4 MG, EVERY 28 DAYS
     Route: 042
     Dates: start: 20051123, end: 20060627
  2. FEMARA [Suspect]
     Indication: BREAST CANCER
     Dosage: 2.5 MG/D
     Route: 048
     Dates: start: 20060208

REACTIONS (3)
  - OOPHORECTOMY [None]
  - PARAESTHESIA [None]
  - POLYNEUROPATHY [None]
